FAERS Safety Report 18464777 (Version 1)
Quarter: 2020Q4

REPORT INFORMATION
  Report Type: Spontaneous
  Country: US (occurrence: US)
  Receive Date: 20201104
  Receipt Date: 20201104
  Transmission Date: 20210114
  Serious: Yes (Hospitalization)
  Sender: FDA-Public Use
  Company Number: US-009507513-2011USA000547

PATIENT
  Sex: Male

DRUGS (4)
  1. TERAZOSIN [Suspect]
     Active Substance: TERAZOSIN HYDROCHLORIDE
     Indication: HYPERTENSION
     Route: 048
     Dates: start: 20020917, end: 20050613
  2. VITAMINS (UNSPECIFIED) [Suspect]
     Active Substance: VITAMINS
     Dates: start: 19981110, end: 20050613
  3. ASPIRIN. [Concomitant]
     Active Substance: ASPIRIN
     Dates: start: 19921031, end: 20050613
  4. PRINIVIL [Suspect]
     Active Substance: LISINOPRIL
     Indication: HYPERTENSION
     Route: 048

REACTIONS (2)
  - Intestinal angioedema [Recovered/Resolved]
  - Constipation [Recovered/Resolved]
